FAERS Safety Report 10991659 (Version 3)
Quarter: 2015Q2

REPORT INFORMATION
  Report Type: Report from Study
  Country: US (occurrence: US)
  Receive Date: 20150406
  Receipt Date: 20150623
  Transmission Date: 20150821
  Serious: Yes (Life-Threatening, Hospitalization)
  Sender: FDA-Public Use
  Company Number: US-ABBVIE-15K-163-1368350-00

PATIENT
  Age: 33 Year
  Sex: Male

DRUGS (2)
  1. METOPROLOL [Concomitant]
     Active Substance: METOPROLOL
     Indication: HYPERTENSION
  2. HUMIRA [Suspect]
     Active Substance: ADALIMUMAB
     Indication: CROHN^S DISEASE
     Route: 065
     Dates: start: 20140703

REACTIONS (9)
  - Haemoglobin decreased [Recovering/Resolving]
  - Pancreatitis [Recovered/Resolved]
  - Haemobilia [Recovering/Resolving]
  - Cholelithiasis [Recovered/Resolved]
  - Blood potassium increased [Recovering/Resolving]
  - Red blood cell count increased [Recovering/Resolving]
  - Pancreatitis [Recovering/Resolving]
  - Purulence [Recovering/Resolving]
  - Pancreatitis [Recovering/Resolving]

NARRATIVE: CASE EVENT DATE: 20150324
